FAERS Safety Report 17848937 (Version 3)
Quarter: 2020Q4

REPORT INFORMATION
  Report Type: Report from Study
  Country: US (occurrence: US)
  Receive Date: 20200602
  Receipt Date: 20201225
  Transmission Date: 20210113
  Serious: No
  Sender: FDA-Public Use
  Company Number: NVSC2020US151067

PATIENT
  Sex: Female

DRUGS (1)
  1. ENTRESTO [Suspect]
     Active Substance: SACUBITRIL\VALSARTAN
     Indication: PRODUCT USED FOR UNKNOWN INDICATION
     Dosage: 200 MG (97/103 MG), BID
     Route: 048
     Dates: start: 20200401

REACTIONS (5)
  - Feeling abnormal [Unknown]
  - Joint swelling [Unknown]
  - Thirst [Unknown]
  - Apathy [Unknown]
  - Swelling [Unknown]
